FAERS Safety Report 8374268-3 (Version None)
Quarter: 2012Q2

REPORT INFORMATION
  Report Type: 
  Country: None (occurrence: None)
  Receive Date: 20120521
  Receipt Date: 20120517
  Transmission Date: 20120825
  Serious: Yes (Other)
  Sender: FDA-Public Use
  Company Number: VE-PFIZER INC-2012112168

PATIENT
  Age: 85 Year
  Sex: Female

DRUGS (3)
  1. LIPITOR [Suspect]
     Indication: CARDIAC OPERATION
     Dosage: 40 MG, 1X/DAY
     Route: 048
     Dates: start: 20030101
  2. EUTHYROX [Concomitant]
     Indication: THYROID DISORDER
  3. GLUCOFAGE [Concomitant]
     Indication: DIABETES MELLITUS
     Dosage: UNK
     Route: 048

REACTIONS (2)
  - MACULAR DEGENERATION [None]
  - INTRAOCULAR PRESSURE INCREASED [None]
